FAERS Safety Report 25682613 (Version 2)
Quarter: 2025Q3

REPORT INFORMATION
  Report Type: Spontaneous
  Country: JP (occurrence: JP)
  Receive Date: 20250814
  Receipt Date: 20250818
  Transmission Date: 20251021
  Serious: Yes (Other)
  Sender: ALEXION PHARMACEUTICALS
  Company Number: JP-ASTRAZENECA-202508JPN003976JP

PATIENT
  Sex: Female

DRUGS (4)
  1. FASLODEX [Suspect]
     Active Substance: FULVESTRANT
     Route: 065
  2. FASLODEX [Suspect]
     Active Substance: FULVESTRANT
     Dosage: 160 MILLIGRAM, QID
     Route: 065
  3. TRUQAP [Suspect]
     Active Substance: CAPIVASERTIB
     Dosage: 200 MILLIGRAM, QID
     Route: 065
  4. TRUQAP [Suspect]
     Active Substance: CAPIVASERTIB
     Dosage: 160 MILLIGRAM, QID
     Route: 065

REACTIONS (7)
  - Metastases to lymph nodes [Unknown]
  - Erythema multiforme [Unknown]
  - Tumour marker increased [Unknown]
  - Metastases to liver [Unknown]
  - Drug ineffective [Unknown]
  - Metastases to lung [Unknown]
  - Metastases to bone [Unknown]
